FAERS Safety Report 8465619-X (Version None)
Quarter: 2012Q2

REPORT INFORMATION
  Report Type: 
  Country: None (occurrence: None)
  Receive Date: 20120619
  Receipt Date: 20120612
  Transmission Date: 20120825
  Serious: Yes (Other)
  Sender: FDA-Public Use
  Company Number: 2012-002183

PATIENT
  Age: 59 Year
  Sex: Female

DRUGS (5)
  1. FENOFIBRATE [Suspect]
     Indication: HYPERCHOLESTEROLAEMIA
     Dosage: ORAL
     Route: 048
     Dates: end: 20120101
  2. ACTONEL [Suspect]
     Indication: OSTEOPOROSIS
     Dates: end: 20120101
  3. CALCIUM + D3 (CALCIUM, COLECALCIFEROL) [Suspect]
     Indication: OSTEOPOROSIS
     Dates: end: 20120101
  4. ORBENIN CAP [Suspect]
     Indication: BREAST ABSCESS
     Dosage: 2 GRAMS DAILY, ORAL
     Route: 048
     Dates: start: 20110912, end: 20110920
  5. ACETAMINOPHEN [Suspect]
     Dosage: 3 GRAMS, DAILY, ORAL
     Route: 048
     Dates: end: 20120101

REACTIONS (4)
  - CHRONIC HEPATITIS [None]
  - CHOLESTASIS [None]
  - WEIGHT DECREASED [None]
  - JAUNDICE [None]
